FAERS Safety Report 5286973-6 (Version None)
Quarter: 2007Q1

REPORT INFORMATION
  Report Type: 
  Country: None (occurrence: None)
  Receive Date: 20070329
  Receipt Date: 20070314
  Transmission Date: 20070707
  Serious: Yes (Hospitalization)
  Sender: FDA-Public Use
  Company Number: 032-57

PATIENT
  Age: 61 Year
  Sex: Female

DRUGS (10)
  1. TEVETEN [Suspect]
     Indication: HYPERTENSION
     Dosage: 600 MG QHS; PO
     Route: 048
     Dates: start: 20050714
  2. SULFATE QUININE [Suspect]
     Indication: MUSCLE SPASMS
     Dosage: 250 MG UNK; PO
     Route: 048
     Dates: start: 20031029, end: 20050902
  3. AMITRIPTYLINE CHLORHYDRATE [Suspect]
     Indication: FIBROMYALGIA
     Dosage: 25 MG QD; PO
     Route: 048
     Dates: start: 20050830, end: 20050902
  4. AMITRIPTYLINE CHLORHYDRATE [Suspect]
     Indication: INSOMNIA
     Dosage: 25 MG QD; PO
     Route: 048
     Dates: start: 20050830, end: 20050902
  5. CARVEDILOL [Concomitant]
  6. METFORMIN [Concomitant]
  7. GLIQUIDONE [Concomitant]
  8. RANITIDINE [Concomitant]
  9. FENOFIBRATE [Concomitant]
  10. FLUOXETINE [Concomitant]

REACTIONS (1)
  - GRAND MAL CONVULSION [None]
